FAERS Safety Report 7054405-3 (Version None)
Quarter: 2010Q4

REPORT INFORMATION
  Report Type: 
  Country: None (occurrence: None)
  Receive Date: 20101020
  Receipt Date: 20101014
  Transmission Date: 20110411
  Serious: Yes (Hospitalization)
  Sender: FDA-Public Use
  Company Number: RO-ROCHE-733893

PATIENT
  Sex: Female
  Weight: 82 kg

DRUGS (3)
  1. TOCILIZUMAB [Suspect]
     Indication: RHEUMATOID ARTHRITIS
     Route: 042
     Dates: start: 20100610, end: 20100701
  2. ARAVA [Suspect]
     Indication: RHEUMATOID ARTHRITIS
     Dosage: FREQUENCY: Q DAILY
     Route: 048
     Dates: start: 20020211
  3. METHOTREXATE [Suspect]
     Indication: RHEUMATOID ARTHRITIS
     Route: 042
     Dates: start: 20040210

REACTIONS (2)
  - TENOSYNOVITIS [None]
  - THROMBOCYTOPENIA [None]
